FAERS Safety Report 9412179 (Version 2)
Quarter: 2013Q3

REPORT INFORMATION
  Report Type: Spontaneous
  Country: US (occurrence: US)
  Receive Date: 20130722
  Receipt Date: 20130813
  Transmission Date: 20140515
  Serious: No
  Sender: FDA-Public Use
  Company Number: US-TEVA-420089USA

PATIENT
  Age: 33 Year
  Sex: Female
  Weight: 75.82 kg

DRUGS (1)
  1. PARAGARD 380A [Suspect]
     Indication: CONTRACEPTION
     Route: 015
     Dates: start: 20130319, end: 20130711

REACTIONS (1)
  - Device expulsion [Recovered/Resolved with Sequelae]
